FAERS Safety Report 5109858-4 (Version None)
Quarter: 2006Q3

REPORT INFORMATION
  Report Type: 
  Country: None (occurrence: None)
  Receive Date: 20060918
  Receipt Date: 20060918
  Transmission Date: 20061208
  Serious: Yes (Life-Threatening, Other)
  Sender: FDA-Public Use
  Company Number: None

PATIENT
  Age: 51 Year
  Sex: Female
  Weight: 128.368 kg

DRUGS (5)
  1. ADVAIR DISKUS 500/50 [Suspect]
     Indication: ASTHMA
     Dosage: ONE INHALATON ONCE DAILY  PO
     Route: 048
     Dates: start: 20010101, end: 20030601
  2. ADVAIR DISKUS 250/50 [Suspect]
     Dosage: ONE INHALATION    ONCE DAILY   PO
     Route: 048
  3. RHINOCORT AQUA [Concomitant]
  4. SINGULAIR [Concomitant]
  5. DIABETIC MEDICATIONS [Concomitant]

REACTIONS (9)
  - ACTIVITIES OF DAILY LIVING IMPAIRED [None]
  - ANAEMIA [None]
  - ASTHENIA [None]
  - CARDIAC FAILURE CONGESTIVE [None]
  - DISEASE RECURRENCE [None]
  - HEADACHE [None]
  - MALAISE [None]
  - PAIN [None]
  - PANNICULITIS [None]
